FAERS Safety Report 21673312 (Version 3)
Quarter: 2023Q1

REPORT INFORMATION
  Report Type: Spontaneous
  Country: HR (occurrence: HR)
  Receive Date: 20221202
  Receipt Date: 20230106
  Transmission Date: 20230417
  Serious: Yes (Other)
  Sender: FDA-Public Use
  Company Number: HR-BRISTOL-MYERS SQUIBB COMPANY-2022-142919

PATIENT
  Age: 69 Year
  Sex: Male

DRUGS (1)
  1. OPDIVO [Suspect]
     Active Substance: NIVOLUMAB
     Indication: Metastatic malignant melanoma
     Dosage: THERAPY DURATION: 1 YEAR 5 MONTHS
     Route: 042
     Dates: start: 20210617

REACTIONS (5)
  - Urinary tract infection [Recovering/Resolving]
  - Epilepsy [Unknown]
  - Metastases to central nervous system [Unknown]
  - Muscle spasms [Unknown]
  - Liver abscess [Recovering/Resolving]

NARRATIVE: CASE EVENT DATE: 20210921
